FAERS Safety Report 13677093 (Version 1)
Quarter: 2017Q2

REPORT INFORMATION
  Report Type: Spontaneous
  Country: US (occurrence: US)
  Receive Date: 20170622
  Receipt Date: 20170622
  Transmission Date: 20170830
  Serious: No
  Sender: FDA-Public Use
  Company Number: US-MYLANLABS-2016M1021737

PATIENT
  Age: 56 Year
  Sex: Male
  Weight: 86.17 kg

DRUGS (2)
  1. DOXEPIN HYDROCHLORIDE CAPSULES, USP [Suspect]
     Active Substance: DOXEPIN HYDROCHLORIDE
     Dosage: 300 MG QD
     Route: 048
     Dates: start: 201605
  2. DOXEPIN HYDROCHLORIDE CAPSULES, USP [Suspect]
     Active Substance: DOXEPIN HYDROCHLORIDE
     Indication: DEPRESSION
     Dosage: 275 MG, QD
     Route: 048
     Dates: end: 201605

REACTIONS (2)
  - Antidepressant drug level decreased [Recovering/Resolving]
  - Depressive symptom [Recovered/Resolved]

NARRATIVE: CASE EVENT DATE: 201605
